FAERS Safety Report 5604769-X (Version None)
Quarter: 2008Q1

REPORT INFORMATION
  Report Type: 
  Country: None (occurrence: None)
  Receive Date: 20080128
  Receipt Date: 20080116
  Transmission Date: 20080703
  Serious: Yes (Death)
  Sender: FDA-Public Use
  Company Number: US-ROCHE-542860

PATIENT
  Age: 44 Year
  Sex: Female

DRUGS (4)
  1. NAPROXEN [Suspect]
     Indication: DRUG USE FOR UNKNOWN INDICATION
     Route: 065
  2. OXYCODONE [Suspect]
     Route: 065
  3. BENZODIAZEPINE [Suspect]
     Route: 065
  4. PREGABALIN [Suspect]
     Route: 065

REACTIONS (1)
  - DRUG TOXICITY [None]
